FAERS Safety Report 15834222 (Version 1)
Quarter: 2019Q1

REPORT INFORMATION
  Report Type: Report from Study
  Country: US (occurrence: US)
  Receive Date: 20190116
  Receipt Date: 20190116
  Transmission Date: 20190417
  Serious: Yes (Other)
  Sender: FDA-Public Use
  Company Number: US-GILEAD-2019-0385123

PATIENT
  Age: 65 Year
  Sex: Female

DRUGS (22)
  1. TRULICITY [Concomitant]
     Active Substance: DULAGLUTIDE
  2. FLOVENT HFA [Concomitant]
     Active Substance: FLUTICASONE PROPIONATE
  3. POTASSIUM CHLORIDE. [Concomitant]
     Active Substance: POTASSIUM CHLORIDE
  4. LOSARTAN POTASSIUM. [Concomitant]
     Active Substance: LOSARTAN POTASSIUM
  5. IBUPROFEN. [Concomitant]
     Active Substance: IBUPROFEN
  6. POTASSIUM CITRATE. [Concomitant]
     Active Substance: POTASSIUM CITRATE
  7. AMOXICILLIN. [Concomitant]
     Active Substance: AMOXICILLIN
  8. BUMETANIDE. [Concomitant]
     Active Substance: BUMETANIDE
  9. AMBRISENTAN [Suspect]
     Active Substance: AMBRISENTAN
     Indication: PULMONARY ARTERIAL HYPERTENSION
     Dosage: 10 MG, QD
     Route: 065
     Dates: start: 20180120
  10. SPIRONOLACTONE. [Concomitant]
     Active Substance: SPIRONOLACTONE
  11. RANITIDINE. [Concomitant]
     Active Substance: RANITIDINE
  12. ESCITALOPRAM [Concomitant]
     Active Substance: ESCITALOPRAM OXALATE
  13. METOLAZONE. [Concomitant]
     Active Substance: METOLAZONE
  14. PROPAFENONE. [Concomitant]
     Active Substance: PROPAFENONE
  15. MONTELUKAST [Concomitant]
     Active Substance: MONTELUKAST SODIUM
  16. TOLTERODINE [Concomitant]
     Active Substance: TOLTERODINE
  17. LEVOTHYROXIN [Concomitant]
     Active Substance: LEVOTHYROXINE
  18. METFORMIN [Concomitant]
     Active Substance: METFORMIN HYDROCHLORIDE
  19. MOMETASONE [Concomitant]
     Active Substance: MOMETASONE
  20. METOPROLOL TARTRAS [Concomitant]
  21. SIMVASTATIN. [Concomitant]
     Active Substance: SIMVASTATIN
  22. CLARITHROMYCIN. [Concomitant]
     Active Substance: CLARITHROMYCIN

REACTIONS (1)
  - Knee arthroplasty [Unknown]
